FAERS Safety Report 9186728 (Version 2)
Quarter: 2013Q4

REPORT INFORMATION
  Report Type: Spontaneous
  Country: SE (occurrence: SE)
  Receive Date: 20130325
  Receipt Date: 20131021
  Transmission Date: 20140711
  Serious: Yes (Other)
  Sender: FDA-Public Use
  Company Number: SE-009507513-1303SWE010992

PATIENT
  Age: 67 Year
  Sex: Male

DRUGS (1)
  1. FOSAMAX [Suspect]
     Indication: OSTEOPOROSIS
     Dosage: WEEKLY
     Route: 048
     Dates: end: 201204

REACTIONS (1)
  - Femur fracture [Unknown]
